FAERS Safety Report 7807602-0 (Version None)
Quarter: 2011Q4

REPORT INFORMATION
  Report Type: 
  Country: None (occurrence: None)
  Receive Date: 20111011
  Receipt Date: 20110928
  Transmission Date: 20120403
  Serious: Yes (Hospitalization)
  Sender: FDA-Public Use
  Company Number: DE-MYLANLABS-2011S1020309

PATIENT
  Age: 33 Year

DRUGS (4)
  1. DOXYCYCLINE [Suspect]
     Route: 048
  2. CETIRIZINE HCL [Suspect]
  3. IBUPROFEN [Suspect]
     Route: 048
  4. ACETAMINOPHEN [Suspect]
     Route: 048

REACTIONS (2)
  - NAUSEA [None]
  - SUICIDE ATTEMPT [None]
